FAERS Safety Report 4332434-8 (Version None)
Quarter: 2004Q1

REPORT INFORMATION
  Report Type: 
  Country: None (occurrence: None)
  Receive Date: 20040329
  Receipt Date: 20031211
  Transmission Date: 20041129
  Serious: No
  Sender: FDA-Public Use
  Company Number: 03P-163-0242267-00

PATIENT
  Age: 72 Year
  Sex: Female
  Weight: 68.0396 kg

DRUGS (7)
  1. HUMIRA [Suspect]
     Indication: RHEUMATOID ARTHRITIS
     Dosage: 40 MG, 2 IN 1 D, SUBCUTANEOUS
     Route: 058
     Dates: start: 20030801, end: 20031117
  2. CELECOXIB [Concomitant]
  3. PREDNISONE [Concomitant]
  4. RABEPRAZOLE SODIUM [Concomitant]
  5. ATENOLOL [Concomitant]
  6. KARVEA HCT [Concomitant]
  7. RISEDRONATE SODIUM [Concomitant]

REACTIONS (5)
  - INJECTION SITE ERYTHEMA [None]
  - INJECTION SITE INDURATION [None]
  - INJECTION SITE PRURITUS [None]
  - INJECTION SITE REACTION [None]
  - RASH [None]
